FAERS Safety Report 5846876-2 (Version None)
Quarter: 2008Q3

REPORT INFORMATION
  Report Type: 
  Country: None (occurrence: None)
  Receive Date: 20080815
  Receipt Date: 20080811
  Transmission Date: 20090109
  Serious: Yes (Other)
  Sender: FDA-Public Use
  Company Number: US-ASTRAZENECA-2007UW01729

PATIENT
  Age: 11731 Day
  Sex: Female
  Weight: 124.7 kg

DRUGS (11)
  1. SEROQUEL [Suspect]
     Indication: BIPOLAR DISORDER
     Route: 048
     Dates: start: 19971201
  2. PROZAC [Concomitant]
  3. NEXIUM [Concomitant]
  4. ABILIFY [Concomitant]
  5. LIPITOR [Concomitant]
  6. METOPROLOL [Concomitant]
  7. LISINOPRIL [Concomitant]
  8. ASPIRIN [Concomitant]
  9. KEPPRA [Concomitant]
  10. HUMULIN 70/30 [Concomitant]
  11. TEGRETOL [Concomitant]

REACTIONS (3)
  - CARDIOMEGALY [None]
  - CONVULSION [None]
  - TYPE 2 DIABETES MELLITUS [None]
